FAERS Safety Report 23206764 (Version 1)
Quarter: 2023Q4

REPORT INFORMATION
  Report Type: Spontaneous
  Country: US (occurrence: None)
  Receive Date: 20231118
  Receipt Date: 20231118
  Transmission Date: 20240110
  Serious: Yes (Hospitalization)
  Sender: FDA-Public Use
  Company Number: None

PATIENT
  Age: 30 Year
  Sex: Female
  Weight: 57.6 kg

DRUGS (1)
  1. BCG LIVE [Suspect]
     Active Substance: BACILLUS CALMETTE-GUERIN SUBSTRAIN TICE LIVE ANTIGEN
     Dates: end: 20231106

REACTIONS (4)
  - Urinary tract infection [None]
  - Hyperglycaemia [None]
  - Pyrexia [None]
  - Therapy interrupted [None]

NARRATIVE: CASE EVENT DATE: 20231111
